FAERS Safety Report 8871969 (Version 1)
Quarter: 2012Q4

REPORT INFORMATION
  Report Type: Spontaneous
  Country: US (occurrence: None)
  Receive Date: 20121024
  Receipt Date: 20121024
  Transmission Date: 20130627
  Serious: Yes (Hospitalization, Disabling, Other)
  Sender: FDA-Public Use
  Company Number: 2012MA012244

PATIENT
  Age: 20 Year
  Sex: Male

DRUGS (1)
  1. ALPRAZOLAM [Suspect]

REACTIONS (11)
  - Mental status changes [None]
  - Toxicity to various agents [None]
  - Blood pressure increased [None]
  - Somnolence [None]
  - Drug screen positive [None]
  - Electrocardiogram ST segment elevation [None]
  - Left ventricular dysfunction [None]
  - Troponin increased [None]
  - Blood creatine phosphokinase increased [None]
  - Substance abuse [None]
  - Cardiomyopathy [None]
